FAERS Safety Report 12954641 (Version 1)
Quarter: 2016Q4

REPORT INFORMATION
  Report Type: Spontaneous
  Country: US (occurrence: US)
  Receive Date: 20161117
  Receipt Date: 20161117
  Transmission Date: 20170207
  Serious: Yes (Life-Threatening, Hospitalization, Other)
  Sender: FDA-Public Use
  Company Number: None

PATIENT
  Age: 33 Year
  Sex: Female
  Weight: 135 kg

DRUGS (2)
  1. MIRENA [Suspect]
     Active Substance: LEVONORGESTREL
     Indication: CONTRACEPTION
     Dosage: ?          QUANTITY:1 IUD;OTHER FREQUENCY:5 YEARS;OTHER ROUTE:PLACED IN UTERUS?
     Route: 015
     Dates: start: 20101031, end: 20160318
  2. LEVOTHYROXINE. [Concomitant]
     Active Substance: LEVOTHYROXINE

REACTIONS (2)
  - Pregnancy with contraceptive device [None]
  - Exposure during pregnancy [None]

NARRATIVE: CASE EVENT DATE: 20150621
